FAERS Safety Report 7790149-8 (Version None)
Quarter: 2011Q3

REPORT INFORMATION
  Report Type: 
  Country: None (occurrence: None)
  Receive Date: 20110930
  Receipt Date: 20101115
  Transmission Date: 20111222
  Serious: No
  Sender: FDA-Public Use
  Company Number: US-ASTRAZENECA-2010SE54438

PATIENT
  Age: 81 Year
  Sex: Female
  Weight: 81.6 kg

DRUGS (3)
  1. BP MED [Concomitant]
  2. VIT D [Concomitant]
  3. ARIMIDEX [Suspect]
     Indication: BREAST CANCER
     Route: 048
     Dates: start: 20100101

REACTIONS (1)
  - HAIR GROWTH ABNORMAL [None]
